FAERS Safety Report 4528763-5 (Version None)
Quarter: 2004Q4

REPORT INFORMATION
  Report Type: 
  Country: None (occurrence: None)
  Receive Date: 20041216
  Receipt Date: 20041202
  Transmission Date: 20050328
  Serious: Yes (Other)
  Sender: FDA-Public Use
  Company Number: SE-ROCHE-387851

PATIENT
  Age: 28 Year
  Sex: Male

DRUGS (2)
  1. ROACCUTAN [Suspect]
     Indication: DRUG USE FOR UNKNOWN INDICATION
     Route: 048
     Dates: start: 19890615, end: 19890615
  2. ROACCUTAN [Suspect]
     Route: 048
     Dates: start: 19910615

REACTIONS (2)
  - ANXIETY [None]
  - SOCIAL PHOBIA [None]
